FAERS Safety Report 9208121 (Version 1)
Quarter: 2013Q2

REPORT INFORMATION
  Report Type: Spontaneous
  Country: PT (occurrence: PT)
  Receive Date: 20130403
  Receipt Date: 20130403
  Transmission Date: 20140414
  Serious: Yes (Other)
  Sender: FDA-Public Use
  Company Number: PT-ROXANE LABORATORIES, INC.-2013-RO-00428RO

PATIENT
  Age: 48 Year
  Sex: Female

DRUGS (5)
  1. QUETIAPINE FUMARATE [Suspect]
  2. PREDNISONE [Suspect]
     Indication: PEMPHIGOID
     Route: 048
  3. AZATHIOPRINE [Suspect]
     Indication: PEMPHIGOID
     Dosage: 100 MG
     Route: 048
  4. PITAVASTATIN [Suspect]
  5. ANTIRETROVIRAL THERAPY [Concomitant]
     Indication: HIV INFECTION

REACTIONS (2)
  - Pemphigoid [Recovered/Resolved]
  - Bicytopenia [Recovered/Resolved]
